FAERS Safety Report 23829349 (Version 2)
Quarter: 2024Q2

REPORT INFORMATION
  Report Type: Spontaneous
  Country: US (occurrence: US)
  Receive Date: 20240508
  Receipt Date: 20240514
  Transmission Date: 20240715
  Serious: Yes (Other)
  Sender: FDA-Public Use
  Company Number: US-AMGEN-USASP2024090235

PATIENT
  Age: 68 Year
  Sex: Female

DRUGS (67)
  1. AIMOVIG [Suspect]
     Active Substance: ERENUMAB-AOOE
     Indication: Migraine
     Dosage: 140 MILLIGRAM, QMO
     Route: 058
  2. SYNTHROID [Concomitant]
     Active Substance: LEVOTHYROXINE SODIUM
     Dosage: 75MCG ONE DAY AND THE NEXT DAY A HALF TABLET ALTERNATING BACK AND FORTH
     Dates: start: 2004
  3. SYNTHROID [Concomitant]
     Active Substance: LEVOTHYROXINE SODIUM
     Indication: Autoimmune thyroiditis
     Route: 058
  4. SYNTHROID [Concomitant]
     Active Substance: LEVOTHYROXINE SODIUM
     Indication: Product used for unknown indication
     Route: 058
  5. SYNTHROID [Concomitant]
     Active Substance: LEVOTHYROXINE SODIUM
     Route: 058
  6. CRESTOR [Concomitant]
     Active Substance: ROSUVASTATIN CALCIUM
     Indication: Hypercholesterolaemia
     Dosage: 5 MG ONE DAY AND THE NEXT DAY A HALF TABLET ALTERNATING BACK AND FORTH
     Dates: start: 2014
  7. CRESTOR [Concomitant]
     Active Substance: ROSUVASTATIN CALCIUM
     Indication: Product used for unknown indication
     Route: 058
  8. CRESTOR [Concomitant]
     Active Substance: ROSUVASTATIN CALCIUM
     Route: 058
  9. PREMPRO [Concomitant]
     Active Substance: ESTROGENS, CONJUGATED\MEDROXYPROGESTERONE ACETATE
     Indication: Hormone replacement therapy
     Dosage: DECREASES FROM 5 MG TO 2.5 MG 4 TO 5 YEARS AGO
  10. PREMPRO [Concomitant]
     Active Substance: ESTROGENS, CONJUGATED\MEDROXYPROGESTERONE ACETATE
     Indication: Product used for unknown indication
     Route: 058
  11. PREMPRO [Concomitant]
     Active Substance: ESTROGENS, CONJUGATED\MEDROXYPROGESTERONE ACETATE
     Route: 058
  12. CELEBREX [Concomitant]
     Active Substance: CELECOXIB
     Indication: Osteoarthritis
     Dosage: 200 MILLIGRAM, QD
     Route: 065
     Dates: start: 2014
  13. CELEBREX [Concomitant]
     Active Substance: CELECOXIB
     Indication: Product used for unknown indication
     Route: 058
  14. CELEBREX [Concomitant]
     Active Substance: CELECOXIB
     Route: 058
  15. NEURONTIN [Concomitant]
     Active Substance: GABAPENTIN
     Indication: Neuropathy peripheral
     Dosage: UNK
     Dates: start: 2015
  16. NEURONTIN [Concomitant]
     Active Substance: GABAPENTIN
     Indication: Product used for unknown indication
     Route: 058
  17. NEURONTIN [Concomitant]
     Active Substance: GABAPENTIN
     Route: 058
  18. PEPCID [Concomitant]
     Active Substance: FAMOTIDINE
     Indication: Food allergy
     Dosage: 20 MILLIGRAM, BID
  19. PEPCID [Concomitant]
     Active Substance: FAMOTIDINE
     Indication: Product used for unknown indication
     Route: 058
  20. PEPCID [Concomitant]
     Active Substance: FAMOTIDINE
     Route: 058
  21. GASTROCROM [Concomitant]
     Active Substance: CROMOLYN SODIUM
     Indication: Food allergy
     Dosage: 100MG/5ML AMPULE AND TAKES 12 AMPULES A DAY
  22. GASTROCROM [Concomitant]
     Active Substance: CROMOLYN SODIUM
     Indication: Product used for unknown indication
     Route: 058
  23. GASTROCROM [Concomitant]
     Active Substance: CROMOLYN SODIUM
     Route: 058
  24. RESTASIS [Concomitant]
     Active Substance: CYCLOSPORINE
     Indication: Conjunctivitis
     Dosage: UNK
  25. RESTASIS [Concomitant]
     Active Substance: CYCLOSPORINE
     Indication: Rosacea
     Route: 058
  26. RESTASIS [Concomitant]
     Active Substance: CYCLOSPORINE
     Indication: Product used for unknown indication
     Route: 058
  27. UROGESIC BLUE [Concomitant]
     Active Substance: HYOSCYAMINE SULFATE\METHENAMINE\METHYLENE BLUE\PHENYL SALICYLATE\SODIUM PHOSPHATE, MONOBASIC, MONOHY
     Indication: Product used for unknown indication
     Dosage: 4 TIMES A DAY
     Dates: start: 2014
  28. UROGESIC BLUE [Concomitant]
     Active Substance: HYOSCYAMINE SULFATE\METHENAMINE\METHYLENE BLUE\PHENYL SALICYLATE\SODIUM PHOSPHATE, MONOBASIC, MONOHY
     Route: 058
  29. UROGESIC BLUE [Concomitant]
     Active Substance: HYOSCYAMINE SULFATE\METHENAMINE\METHYLENE BLUE\PHENYL SALICYLATE\SODIUM PHOSPHATE, MONOBASIC, MONOHY
     Route: 058
  30. MINOCYCLINE HYDROCHLORIDE [Concomitant]
     Active Substance: MINOCYCLINE HYDROCHLORIDE
     Indication: Rosacea
     Dosage: UNK
     Dates: start: 2015
  31. MINOCYCLINE HYDROCHLORIDE [Concomitant]
     Active Substance: MINOCYCLINE HYDROCHLORIDE
     Indication: Product used for unknown indication
     Route: 058
  32. MINOCYCLINE HYDROCHLORIDE [Concomitant]
     Active Substance: MINOCYCLINE HYDROCHLORIDE
     Route: 058
  33. XOPENEX [Concomitant]
     Active Substance: LEVALBUTEROL HYDROCHLORIDE
     Indication: Asthma
     Dosage: UNK
  34. XOPENEX [Concomitant]
     Active Substance: LEVALBUTEROL HYDROCHLORIDE
     Indication: Product used for unknown indication
     Route: 058
  35. XOPENEX [Concomitant]
     Active Substance: LEVALBUTEROL HYDROCHLORIDE
     Route: 058
  36. IMITREX [Concomitant]
     Active Substance: SUMATRIPTAN SUCCINATE
     Indication: Migraine
     Dosage: 100 MILLIGRAM
  37. IMITREX [Concomitant]
     Active Substance: SUMATRIPTAN SUCCINATE
     Indication: Product used for unknown indication
     Route: 058
  38. IMITREX [Concomitant]
     Active Substance: SUMATRIPTAN SUCCINATE
     Route: 058
  39. LIDEX [Concomitant]
     Active Substance: FLUOCINONIDE
     Indication: Back pain
     Dosage: 5 PERCENT PATCH EVERY 12 HOURS AS NEEDED
     Dates: start: 2018
  40. LIDEX [Concomitant]
     Active Substance: FLUOCINONIDE
     Indication: Arthralgia
     Route: 058
  41. LIDEX [Concomitant]
     Active Substance: FLUOCINONIDE
     Indication: Product used for unknown indication
     Route: 058
  42. DIFLUCAN [Concomitant]
     Active Substance: FLUCONAZOLE
     Indication: Vulvovaginal mycotic infection
     Dosage: 150 MILLIGRAM, QWK
     Dates: start: 2019
  43. DIFLUCAN [Concomitant]
     Active Substance: FLUCONAZOLE
     Indication: Product used for unknown indication
     Route: 058
  44. DIFLUCAN [Concomitant]
     Active Substance: FLUCONAZOLE
     Route: 058
  45. ESTRACE [Concomitant]
     Active Substance: ESTRADIOL
     Indication: Menopausal symptoms
     Dosage: UNK
     Dates: start: 2018
  46. ESTRACE [Concomitant]
     Active Substance: ESTRADIOL
     Indication: Product used for unknown indication
     Route: 067
  47. ESTRACE [Concomitant]
     Active Substance: ESTRADIOL
     Route: 067
  48. METROGEL [Concomitant]
     Active Substance: METRONIDAZOLE
     Indication: Rosacea
     Dosage: 1 PERCENT TOPICAL
  49. METROGEL [Concomitant]
     Active Substance: METRONIDAZOLE
     Indication: Product used for unknown indication
     Route: 058
  50. METROGEL [Concomitant]
     Active Substance: METRONIDAZOLE
     Route: 058
  51. PAZEO [Concomitant]
     Active Substance: OLOPATADINE HYDROCHLORIDE
     Indication: Conjunctivitis
     Dosage: 0.07 PERCENT SOLUTION
  52. PAZEO [Concomitant]
     Active Substance: OLOPATADINE HYDROCHLORIDE
     Indication: Product used for unknown indication
     Route: 058
  53. PAZEO [Concomitant]
     Active Substance: OLOPATADINE HYDROCHLORIDE
     Route: 058
  54. SHINGRIX [Concomitant]
     Active Substance: RECOMBINANT VARICELLA ZOSTER VIRUS (VZV) GLYCOPROTEIN E
     Indication: Product used for unknown indication
     Dosage: UNK
  55. SHINGRIX [Concomitant]
     Active Substance: RECOMBINANT VARICELLA ZOSTER VIRUS (VZV) GLYCOPROTEIN E
     Route: 058
  56. SHINGRIX [Concomitant]
     Active Substance: RECOMBINANT VARICELLA ZOSTER VIRUS (VZV) GLYCOPROTEIN E
     Route: 058
  57. XYZAL [Concomitant]
     Active Substance: LEVOCETIRIZINE DIHYDROCHLORIDE
     Indication: Hypersensitivity
     Dosage: 5 MILLIGRAM, QD
  58. XYZAL [Concomitant]
     Active Substance: LEVOCETIRIZINE DIHYDROCHLORIDE
     Indication: Adverse reaction
     Route: 058
  59. XYZAL [Concomitant]
     Active Substance: LEVOCETIRIZINE DIHYDROCHLORIDE
     Indication: Product used for unknown indication
     Route: 058
  60. VITAMIN D2 [Concomitant]
     Active Substance: ERGOCALCIFEROL
     Indication: Osteopenia
     Dosage: 50,000 UNITS ONCE A MONTH
     Dates: start: 2017
  61. ESTROGENS [Concomitant]
     Active Substance: ESTROGENS
     Indication: Hormone replacement therapy
     Dosage: 0.0625
  62. GUAIFENESIN [Concomitant]
     Active Substance: GUAIFENESIN
     Indication: Hypersensitivity
     Dosage: 600 MILLIGRAM, BID
     Dates: start: 2004
  63. GEMTESA [Concomitant]
     Active Substance: VIBEGRON
     Indication: Cystitis
     Dosage: 75 MILLIGRAM
  64. INFLUENZA VIRUS VACCINE [Concomitant]
     Active Substance: INFLUENZA VIRUS VACCINE
  65. UNSPECIFIED INGREDIENT [Concomitant]
     Active Substance: UNSPECIFIED INGREDIENT
  66. COVID-19 vaccine [Concomitant]
  67. HEPATITIS A VACCINE NOS [Concomitant]
     Active Substance: HEPATITIS A VACCINE, INACTIVATED
     Dosage: UNK

REACTIONS (6)
  - Joint arthroplasty [Unknown]
  - Cystoscopy [Unknown]
  - Product storage error [Unknown]
  - Circumstance or information capable of leading to medication error [Unknown]
  - Device difficult to use [Unknown]
  - Drug dose omission by device [Unknown]

NARRATIVE: CASE EVENT DATE: 20210101
